FAERS Safety Report 25805884 (Version 1)
Quarter: 2025Q3

REPORT INFORMATION
  Report Type: Spontaneous
  Country: CN (occurrence: CN)
  Receive Date: 20250916
  Receipt Date: 20250916
  Transmission Date: 20251021
  Serious: Yes (Other)
  Sender: ABBVIE
  Company Number: CN-ABBVIE-6457265

PATIENT
  Age: 73 Year
  Sex: Male

DRUGS (2)
  1. VENETOCLAX [Suspect]
     Active Substance: VENETOCLAX
     Indication: Full blood count decreased
     Dosage: 100 MILLIGRAM
     Route: 048
     Dates: start: 20250829, end: 20250908
  2. AZACITIDINE [Suspect]
     Active Substance: AZACITIDINE
     Indication: Full blood count decreased
     Dosage: 130 MILLIGRAM
     Route: 058
     Dates: start: 20250826, end: 20250902

REACTIONS (2)
  - Myelosuppression [Recovering/Resolving]
  - Fatigue [Unknown]

NARRATIVE: CASE EVENT DATE: 20250912
